FAERS Safety Report 5099514-3 (Version None)
Quarter: 2006Q3

REPORT INFORMATION
  Report Type: 
  Country: None (occurrence: None)
  Receive Date: 20060906
  Receipt Date: 20060906
  Transmission Date: 20061208
  Serious: No
  Sender: FDA-Public Use
  Company Number: None

PATIENT
  Sex: Male
  Weight: 94.2121 kg

DRUGS (1)
  1. APLISOL [Suspect]
     Indication: TUBERCULIN TEST
     Dosage: 0.1ML   ONCE   ID
     Dates: start: 20060617, end: 20060617

REACTIONS (1)
  - INJECTION SITE INDURATION [None]
